FAERS Safety Report 6483239-3 (Version None)
Quarter: 2009Q4

REPORT INFORMATION
  Report Type: 
  Country: None (occurrence: None)
  Receive Date: 20091209
  Receipt Date: 20091130
  Transmission Date: 20100525
  Serious: Yes (Hospitalization)
  Sender: FDA-Public Use
  Company Number: HU-ABBOTT-09P-076-0611752-00

PATIENT
  Sex: Female
  Weight: 80 kg

DRUGS (2)
  1. LEUPROLIDE ACETATE [Suspect]
     Indication: PROSTATE CANCER
     Route: 058
     Dates: start: 20050101
  2. ANTIHYPERTENZIVUM [Concomitant]
     Indication: HYPERTENSION

REACTIONS (1)
  - NEPHROLITHIASIS [None]
